FAERS Safety Report 17766602 (Version 1)
Quarter: 2020Q2

REPORT INFORMATION
  Report Type: Spontaneous
  Country: IT (occurrence: IT)
  Receive Date: 20200511
  Receipt Date: 20200511
  Transmission Date: 20200714
  Serious: Yes (Other)
  Sender: FDA-Public Use
  Company Number: IT-SAMSUNG BIOEPIS-SB-2020-15140

PATIENT
  Age: 73 Year
  Sex: Male
  Weight: 69 kg

DRUGS (3)
  1. BENEPALI [Suspect]
     Active Substance: ETANERCEPT
     Indication: PSORIATIC ARTHROPATHY
     Route: 058
     Dates: start: 20180301, end: 20191007
  2. ARAVA 20 MG FILM-COATED TABLETS [Concomitant]
     Indication: PSORIATIC ARTHROPATHY
     Dosage: FLIM-COATED TABLETS
     Route: 048
  3. CARDICOR 2,5 MG COMPRESSE RIVESTITE CON FILM [Concomitant]
     Active Substance: BISOPROLOL FUMARATE
     Indication: HYPERTENSION
     Dosage: FLIM-COATED TABLETS
     Route: 048

REACTIONS (1)
  - Pemphigoid [Not Recovered/Not Resolved]

NARRATIVE: CASE EVENT DATE: 20191015
